FAERS Safety Report 5569297-9 (Version None)
Quarter: 2007Q4

REPORT INFORMATION
  Report Type: 
  Country: None (occurrence: None)
  Receive Date: 20071220
  Receipt Date: 20071016
  Transmission Date: 20080405
  Serious: No
  Sender: FDA-Public Use
  Company Number: A0687998A

PATIENT
  Sex: Male

DRUGS (5)
  1. AVODART [Suspect]
     Indication: DRUG USE FOR UNKNOWN INDICATION
     Dosage: .5MG PER DAY
     Route: 048
     Dates: end: 20070701
  2. TERAZOSIN HCL [Concomitant]
  3. DEXTROL [Concomitant]
  4. UNKNOWN MEDICATION [Concomitant]
  5. LISINOPRIL [Concomitant]

REACTIONS (1)
  - GYNAECOMASTIA [None]
